FAERS Safety Report 8416059-0 (Version None)
Quarter: 2012Q2

REPORT INFORMATION
  Report Type: 
  Country: None (occurrence: None)
  Receive Date: 20120606
  Receipt Date: 20120530
  Transmission Date: 20120825
  Serious: Yes (Hospitalization)
  Sender: FDA-Public Use
  Company Number: DE-UCBSA-058334

PATIENT
  Age: 24 Month
  Sex: Male

DRUGS (3)
  1. OSPOLOT [Concomitant]
  2. VALPROATE SODIUM [Concomitant]
  3. KEPPRA [Suspect]
     Dosage: 100MG/ML
     Dates: start: 20111101

REACTIONS (1)
  - CONVULSION [None]
